FAERS Safety Report 5972793-3 (Version None)
Quarter: 2008Q4

REPORT INFORMATION
  Report Type: 
  Country: None (occurrence: None)
  Receive Date: 20081201
  Receipt Date: 20081124
  Transmission Date: 20090506
  Serious: Yes (Hospitalization, Disabling)
  Sender: FDA-Public Use
  Company Number: US-MERCK-0811USA03903

PATIENT
  Age: 69 Year
  Sex: Female

DRUGS (4)
  1. FOSAMAX [Suspect]
     Indication: OSTEOPENIA
     Route: 048
     Dates: start: 19950101
  2. CLIMARA [Concomitant]
     Route: 065
  3. LIPITOR [Concomitant]
     Route: 065
  4. PROMETRIUM [Concomitant]
     Route: 065

REACTIONS (1)
  - FEMUR FRACTURE [None]
